FAERS Safety Report 6028830-3 (Version None)
Quarter: 2009Q1

REPORT INFORMATION
  Report Type: 
  Country: None (occurrence: None)
  Receive Date: 20090102
  Receipt Date: 20081217
  Transmission Date: 20090719
  Serious: Yes (Hospitalization)
  Sender: FDA-Public Use
  Company Number: 2008SP024768

PATIENT
  Age: 74 Year
  Sex: Male

DRUGS (17)
  1. BOCEPREVIR (SCH 503034) [Suspect]
     Indication: HEPATITIS C
     Dosage: 800 MG; TID; PO
     Route: 048
     Dates: start: 20081125
  2. PEG-INTRON [Suspect]
     Indication: HEPATITIS C
     Dosage: 120 MCG; QW; SC
     Route: 058
     Dates: start: 20081028
  3. REBETOL [Suspect]
     Indication: HEPATITIS C
     Dosage: 1000 MG; QD; PO
     Route: 048
     Dates: start: 20081028
  4. ACEBUTOLOL [Concomitant]
  5. COTAREG [Concomitant]
  6. PERMIXON [Concomitant]
  7. VITAMIN E [Concomitant]
  8. DAFALGAN [Concomitant]
  9. EUPHYTOSE [Concomitant]
  10. PHYSIOTENS [Concomitant]
  11. MYCOSTER [Concomitant]
  12. KETOPROFEN [Concomitant]
  13. DEROXAT [Concomitant]
  14. STILNOX [Concomitant]
  15. BUCCOBET (BETAMETHASONE) [Concomitant]
  16. ESOMEPRAZOLE MAGNESIUM [Concomitant]
  17. BROMAZEPAM [Concomitant]

REACTIONS (3)
  - ABDOMINAL PAIN [None]
  - CONSTIPATION [None]
  - PYREXIA [None]
